FAERS Safety Report 7792044 (Version 2)
Quarter: 2014Q2

REPORT INFORMATION
  Report Type: Spontaneous
  Country: US (occurrence: US)
  Receive Date: 20110131
  Receipt Date: 20140401
  Transmission Date: 20141212
  Serious: Yes (Other)
  Sender: FDA-Public Use
  Company Number: US-BAYER-2011-009147

PATIENT
  Age: 21 Year
  Sex: Female

DRUGS (2)
  1. YAZ [Suspect]
     Indication: PRODUCT USED FOR UNKNOWN INDICATION
     Dosage: UNK
     Dates: start: 20080603
  2. VENTOLIN HFA [Concomitant]
     Dosage: 90 MCG
     Dates: start: 20090303, end: 20100405

REACTIONS (4)
  - Cholelithiasis [None]
  - Gallbladder injury [None]
  - Emotional distress [None]
  - Pain [None]
